FAERS Safety Report 5943910-6 (Version None)
Quarter: 2008Q4

REPORT INFORMATION
  Report Type: 
  Country: None (occurrence: None)
  Receive Date: 20081104
  Receipt Date: 20081021
  Transmission Date: 20090506
  Serious: Yes (Other)
  Sender: FDA-Public Use
  Company Number: 2008S1019192

PATIENT
  Age: 5 Decade
  Sex: Male

DRUGS (3)
  1. BYSTOLIC [Suspect]
     Indication: HYPERTENSION
     Dosage: 5 MG;DAILY;ORAL
     Route: 048
     Dates: start: 20080901, end: 20081001
  2. ACTOS [Concomitant]
  3. NEXIUM [Concomitant]

REACTIONS (2)
  - DRUG TOXICITY [None]
  - HEPATIC ENZYME INCREASED [None]
